FAERS Safety Report 5850649-4 (Version None)
Quarter: 2008Q3

REPORT INFORMATION
  Report Type: 
  Country: None (occurrence: None)
  Receive Date: 20080818
  Receipt Date: 20080805
  Transmission Date: 20090109
  Serious: Yes (Hospitalization, Other)
  Sender: FDA-Public Use
  Company Number: S08-GER-02127-01

PATIENT
  Age: 60 Year
  Sex: Female

DRUGS (5)
  1. CITALOPRAM HYDROBROMIDE [Suspect]
     Dosage: 200 MG (200 MG,ONCE), ORAL; ORAL
     Route: 048
     Dates: start: 20080608, end: 20080608
  2. BROMAZEPAM (BROMAZEPAM) (6 MILLIGRAM, TABLETS) [Suspect]
     Dosage: 60 MG (60 MG,ONCE), ORAL
     Route: 048
     Dates: start: 20080608, end: 20080608
  3. LAMOTRIGTNE (LAMOTRIGINE) (100 MILLIGRAM, TABLETS) [Suspect]
     Dosage: 5000 MG (5000 MG,ONCE), ORAL
     Route: 048
     Dates: start: 20080608, end: 20080608
  4. SEROQUEL [Suspect]
     Dosage: 3600 MG (3600 MG,ONCE), ORAL
     Route: 048
     Dates: start: 20080608, end: 20080608
  5. ALCOHOL (LIQUID) [Suspect]
     Dosage: (ONCE), ORAL
     Route: 048
     Dates: start: 20080608, end: 20080608

REACTIONS (7)
  - ALCOHOL USE [None]
  - BLOOD CREATINE PHOSPHOKINASE INCREASED [None]
  - HYPOTHERMIA [None]
  - HYPOTONIA [None]
  - LOSS OF CONSCIOUSNESS [None]
  - MULTIPLE DRUG OVERDOSE INTENTIONAL [None]
  - SUICIDE ATTEMPT [None]
